FAERS Safety Report 21519958 (Version 1)
Quarter: 2022Q4

REPORT INFORMATION
  Report Type: Spontaneous
  Country: US (occurrence: US)
  Receive Date: 20221028
  Receipt Date: 20221028
  Transmission Date: 20230113
  Serious: Yes (Other)
  Sender: FDA-Public Use
  Company Number: US-UNITED THERAPEUTICS-UNT-2022-025187

PATIENT
  Age: 78 Year
  Sex: Female

DRUGS (2)
  1. TYVASO [Suspect]
     Active Substance: TREPROSTINIL
     Indication: Pulmonary arterial hypertension
     Dosage: UNK
     Dates: start: 20220531
  2. TYVASO [Suspect]
     Active Substance: TREPROSTINIL
     Dosage: 30 ?G, QID
     Dates: start: 2022

REACTIONS (1)
  - Pulmonary oedema [Unknown]

NARRATIVE: CASE EVENT DATE: 20221017
